FAERS Safety Report 22163008 (Version 2)
Quarter: 2023Q4

REPORT INFORMATION
  Report Type: Spontaneous
  Country: JP (occurrence: JP)
  Receive Date: 20230401
  Receipt Date: 20231205
  Transmission Date: 20240110
  Serious: Yes (Death)
  Sender: FDA-Public Use
  Company Number: JP-CHUGAI-2023010550

PATIENT
  Age: 70 Year
  Sex: Female

DRUGS (8)
  1. AVASTIN [Suspect]
     Active Substance: BEVACIZUMAB
     Indication: Cervix carcinoma
     Route: 065
     Dates: start: 20230220, end: 20230313
  2. CARBOPLATIN [Concomitant]
     Active Substance: CARBOPLATIN
     Indication: Cervix carcinoma
     Dosage: UNK
     Route: 041
  3. PACLITAXEL [Concomitant]
     Active Substance: PACLITAXEL
     Indication: Cervix carcinoma
     Dosage: UNK
     Route: 041
  4. PEMBROLIZUMAB [Concomitant]
     Active Substance: PEMBROLIZUMAB
     Indication: Cervix carcinoma
     Dosage: UNK
     Route: 041
  5. CISPLATIN [Concomitant]
     Active Substance: CISPLATIN
     Indication: Cervix carcinoma
     Dosage: UNK
     Route: 041
  6. CYCLOPHOSPHAMIDE [Concomitant]
     Active Substance: CYCLOPHOSPHAMIDE
     Indication: Cervix carcinoma
     Dosage: UNK
     Route: 041
  7. ETOPOSIDE [Concomitant]
     Active Substance: ETOPOSIDE
     Indication: Cervix carcinoma
     Dosage: UNK
     Route: 041
  8. VINCRISTINE [Concomitant]
     Active Substance: VINCRISTINE
     Indication: Cervix carcinoma
     Dosage: UNK
     Route: 041

REACTIONS (1)
  - Mechanical ileus [Fatal]

NARRATIVE: CASE EVENT DATE: 20230313
